FAERS Safety Report 7019516-7 (Version None)
Quarter: 2010Q3

REPORT INFORMATION
  Report Type: 
  Country: None (occurrence: None)
  Receive Date: 20100923
  Receipt Date: 20100529
  Transmission Date: 20110219
  Serious: Yes (Hospitalization)
  Sender: FDA-Public Use
  Company Number: 697471

PATIENT
  Age: 45 Year
  Sex: Female

DRUGS (3)
  1. THIOPENTAL SODIUM [Suspect]
     Indication: ANAESTHESIA
     Dosage: 500 MG MILLIGRAM(S),
     Dates: start: 20090518, end: 20090518
  2. NORCURON [Suspect]
     Indication: ANAESTHESIA
     Dosage: 7 MG MILLIGRAM(S),
     Dates: start: 20090518, end: 20090518
  3. FENTANYL [Suspect]
     Indication: ANAESTHESIA
     Dosage: .2 MG MILLIGRAM(S),
     Dates: start: 20090518, end: 20090518

REACTIONS (5)
  - BLOOD PRESSURE DECREASED [None]
  - ERYTHEMA [None]
  - OBSTRUCTIVE AIRWAYS DISORDER [None]
  - SKIN SWELLING [None]
  - TACHYCARDIA [None]
